FAERS Safety Report 24226391 (Version 1)
Quarter: 2024Q3

REPORT INFORMATION
  Report Type: Spontaneous
  Country: TZ (occurrence: TZ)
  Receive Date: 20240820
  Receipt Date: 20240820
  Transmission Date: 20241017
  Serious: Yes (Death, Hospitalization)
  Sender: MYLAN
  Company Number: TZ-MYLANLABS-2024M1074953

PATIENT
  Age: 4 Decade
  Sex: Male

DRUGS (9)
  1. SILDENAFIL [Suspect]
     Active Substance: SILDENAFIL
     Indication: Pulmonary hypertension
     Dosage: 25 MILLIGRAM, BID
     Route: 065
  2. PIRFENIDONE [Suspect]
     Active Substance: PIRFENIDONE
     Indication: Pneumoconiosis
     Dosage: 200 MILLIGRAM, TID (THREE TIMES PER DAY)
     Route: 065
  3. PIRFENIDONE [Suspect]
     Active Substance: PIRFENIDONE
     Dosage: 800 MILLIGRAM, TID, (THREE TIMES PER DAY; FOR MAINTENANCE)
     Route: 065
  4. PREDNISOLONE [Suspect]
     Active Substance: PREDNISOLONE
     Indication: Pneumoconiosis
     Dosage: 20 MILLIGRAM, QD
     Route: 048
  5. PREDNISOLONE [Suspect]
     Active Substance: PREDNISOLONE
     Dosage: 40 MILLIGRAM, QD
     Route: 048
  6. MONTELUKAST [Suspect]
     Active Substance: MONTELUKAST SODIUM
     Indication: Pneumoconiosis
     Dosage: 10 MILLIGRAM, QD
     Route: 065
  7. BUDESONIDE [Suspect]
     Active Substance: BUDESONIDE
     Indication: Pneumoconiosis
     Dosage: UNK UNK, BID, TWO PUFFS TWICE DAILY
     Route: 065
  8. AMOXICILLIN\CLAVULANIC ACID [Concomitant]
     Active Substance: AMOXICILLIN\CLAVULANIC ACID
     Indication: Evidence based treatment
     Dosage: 1.2 GRAM, BID
     Route: 042
  9. AZITHROMYCIN [Concomitant]
     Active Substance: AZITHROMYCIN
     Indication: Evidence based treatment
     Dosage: 500 MILLIGRAM, QD
     Route: 048

REACTIONS (1)
  - Drug ineffective [Fatal]
